FAERS Safety Report 10212583 (Version 1)
Quarter: 2014Q2

REPORT INFORMATION
  Report Type: Spontaneous
  Country: US (occurrence: US)
  Receive Date: 20140602
  Receipt Date: 20140602
  Transmission Date: 20141212
  Serious: Yes (Other)
  Sender: FDA-Public Use
  Company Number: US-AMGEN-USASP2014036844

PATIENT
  Age: 6 Year
  Sex: Male

DRUGS (2)
  1. ENBREL [Suspect]
     Indication: JUVENILE IDIOPATHIC ARTHRITIS
     Dosage: 25 MG, 2 TIMES/WK
     Route: 065
     Dates: start: 20070101, end: 201001
  2. METHOTREXATE [Concomitant]
     Dosage: UNK

REACTIONS (4)
  - Uveitis [Recovered/Resolved]
  - Nail disorder [Not Recovered/Not Resolved]
  - Condition aggravated [Not Recovered/Not Resolved]
  - Arthropathy [Not Recovered/Not Resolved]
